FAERS Safety Report 4953994-X (Version None)
Quarter: 2006Q1

REPORT INFORMATION
  Report Type: 
  Country: None (occurrence: None)
  Receive Date: 20060327
  Receipt Date: 20060313
  Transmission Date: 20060701
  Serious: Yes (Other)
  Sender: FDA-Public Use
  Company Number: PHBS2006GB04146

PATIENT
  Age: 43 Year
  Sex: Male

DRUGS (4)
  1. PAMIDRONATE DISODIUM [Suspect]
     Indication: OSTEOPOROSIS
     Dosage: 90 MG, QMO
     Route: 065
  2. SODIUM CHROMOGLYCATE [Concomitant]
     Route: 065
  3. RANITIDINE [Concomitant]
     Route: 065
  4. ADRENALINE [Concomitant]
     Route: 065

REACTIONS (7)
  - BONE DEBRIDEMENT [None]
  - BONE DISORDER [None]
  - EXCESSIVE GRANULATION TISSUE [None]
  - OSTEOMYELITIS [None]
  - PAIN [None]
  - PALATAL DISORDER [None]
  - PARAESTHESIA [None]
